FAERS Safety Report 6488901-4 (Version None)
Quarter: 2009Q4

REPORT INFORMATION
  Report Type: 
  Country: None (occurrence: None)
  Receive Date: 20091210
  Receipt Date: 20091127
  Transmission Date: 20100525
  Serious: Yes (Other)
  Sender: FDA-Public Use
  Company Number: JP-SANOFI-AVENTIS-2009SA007013

PATIENT
  Age: 34 Year
  Sex: Male
  Weight: 65 kg

DRUGS (7)
  1. ELPLAT [Suspect]
     Indication: RECTAL CANCER RECURRENT
     Route: 041
     Dates: start: 20080630, end: 20080630
  2. AVASTIN [Suspect]
     Indication: RECTAL CANCER RECURRENT
     Route: 041
     Dates: start: 20080630, end: 20080630
  3. FLUOROURACIL [Suspect]
     Indication: RECTAL CANCER RECURRENT
     Route: 041
     Dates: start: 20080630, end: 20080701
  4. CALCIUM LEVOFOLINATE [Concomitant]
     Dates: start: 20080630
  5. ISOVORIN [Concomitant]
     Dates: start: 20080630, end: 20080630
  6. KYTRIL [Concomitant]
     Dates: start: 20080630, end: 20080630
  7. DEXAMETHASONE TAB [Concomitant]
     Dates: start: 20080630, end: 20080630

REACTIONS (5)
  - DECREASED APPETITE [None]
  - FISTULA [None]
  - INTESTINAL PERFORATION [None]
  - MALAISE [None]
  - NAUSEA [None]
